FAERS Safety Report 8425478-8 (Version None)
Quarter: 2012Q2

REPORT INFORMATION
  Report Type: 
  Country: None (occurrence: None)
  Receive Date: 20120604
  Receipt Date: 20120522
  Transmission Date: 20120825
  Serious: Yes (Other)
  Sender: FDA-Public Use
  Company Number: 2012FR0185

PATIENT
  Sex: Female

DRUGS (1)
  1. KINERET [Suspect]
     Indication: JUVENILE ARTHRITIS

REACTIONS (1)
  - DRUG-INDUCED LIVER INJURY [None]
